FAERS Safety Report 13917593 (Version 2)
Quarter: 2018Q1

REPORT INFORMATION
  Report Type: Report from Study
  Country: CZ (occurrence: CZ)
  Receive Date: 20170829
  Receipt Date: 20180103
  Transmission Date: 20180508
  Serious: Yes (Other)
  Sender: FDA-Public Use
  Company Number: CZ-CELGENEUS-CZE-2017023127

PATIENT
  Age: 70 Year
  Sex: Female

DRUGS (4)
  1. IMNOVID [Suspect]
     Active Substance: POMALIDOMIDE
     Indication: PLASMA CELL MYELOMA
     Route: 048
     Dates: start: 20150901
  2. IMNOVID [Suspect]
     Active Substance: POMALIDOMIDE
     Route: 048
     Dates: start: 20140611, end: 20150219
  3. IMNOVID [Suspect]
     Active Substance: POMALIDOMIDE
     Route: 048
     Dates: end: 20150305
  4. DEXAMETHASONE. [Concomitant]
     Active Substance: DEXAMETHASONE
     Indication: PLASMA CELL MYELOMA
     Route: 065
     Dates: start: 20140611, end: 20150305

REACTIONS (9)
  - Nausea [Unknown]
  - Tachycardia [Unknown]
  - Thrombocytopenia [Unknown]
  - Upper respiratory tract inflammation [Unknown]
  - Back pain [Unknown]
  - Neuropathy peripheral [Unknown]
  - Fatigue [Unknown]
  - Neutropenia [Unknown]
  - Infection [Unknown]
